FAERS Safety Report 5675494-4 (Version None)
Quarter: 2008Q2

REPORT INFORMATION
  Report Type: 
  Country: None (occurrence: None)
  Receive Date: 20080311
  Receipt Date: 20080117
  Transmission Date: 20081010
  Serious: Yes (Other)
  Sender: FDA-Public Use
  Company Number: PHEH2007US15732

PATIENT
  Age: 55 Year
  Sex: Female
  Weight: 71.2 kg

DRUGS (3)
  1. TRILEPTAL [Suspect]
     Indication: CONVULSION
     Dosage: 900 MG, QD, ORAL
     Route: 048
     Dates: start: 20031101
  2. TYLENOL PM (DIPHENHYDRAMINE, PARACETAMOL) [Concomitant]
  3. CLONIDINE [Concomitant]

REACTIONS (1)
  - CATARACT [None]
